FAERS Safety Report 8162161-0 (Version None)
Quarter: 2012Q1

REPORT INFORMATION
  Report Type: 
  Country: None (occurrence: None)
  Receive Date: 20120224
  Receipt Date: 20110906
  Transmission Date: 20120608
  Serious: No
  Sender: FDA-Public Use
  Company Number: US-BRISTOL-MYERS SQUIBB COMPANY-16040859

PATIENT
  Age: 77 Year
  Sex: Male

DRUGS (2)
  1. METFORMIN HCL [Suspect]
     Indication: BLOOD GLUCOSE
     Dosage: 2 IN AM, 2 AT LUNCH, 1 IN AFT NUN
     Route: 048
  2. BLOOD PRESSURE PILL [Concomitant]

REACTIONS (1)
  - DRUG INEFFECTIVE [None]
